FAERS Safety Report 9764620 (Version 1)
Quarter: 2013Q4

REPORT INFORMATION
  Report Type: Spontaneous
  Country: US (occurrence: None)
  Receive Date: 20131213
  Receipt Date: 20131213
  Transmission Date: 20140711
  Serious: No
  Sender: FDA-Public Use
  Company Number: 2013SA032334

PATIENT
  Sex: Female

DRUGS (1)
  1. MENTHOL [Suspect]
     Indication: PRODUCT USED FOR UNKNOWN INDICATION
     Route: 061
     Dates: start: 20120122

REACTIONS (2)
  - Application site erythema [None]
  - Blister [None]
